FAERS Safety Report 9285046 (Version 1)
Quarter: 2013Q2

REPORT INFORMATION
  Report Type: Report from Study
  Country: US (occurrence: US)
  Receive Date: 20130513
  Receipt Date: 20130513
  Transmission Date: 20140414
  Serious: Yes (Hospitalization)
  Sender: FDA-Public Use
  Company Number: US-JNJFOC-20130417918

PATIENT
  Age: 69 Year
  Sex: Male
  Weight: 63.96 kg

DRUGS (9)
  1. DOXORUBICIN HYDROCHLORIDE [Suspect]
     Indication: MYELOID LEUKAEMIA
     Route: 042
     Dates: start: 20130415
  2. BORTEZOMIB [Suspect]
     Indication: MYELOID LEUKAEMIA
     Route: 058
     Dates: start: 20130415
  3. BORTEZOMIB [Suspect]
     Indication: MYELOID LEUKAEMIA
     Route: 058
     Dates: start: 20130412
  4. ACYCLOVIR [Concomitant]
     Indication: PROPHYLAXIS
     Route: 065
  5. GABAPENTIN [Concomitant]
     Route: 065
  6. HYDROCODONE BITARTRATE AND ACETAMINOPHEN [Concomitant]
     Route: 065
  7. MEGACE [Concomitant]
     Route: 065
  8. ZOFRAN [Concomitant]
     Route: 065
  9. COMPAZINE [Concomitant]
     Route: 065

REACTIONS (1)
  - Lung infection [Recovered/Resolved]
